FAERS Safety Report 4395562-7 (Version None)
Quarter: 2004Q3

REPORT INFORMATION
  Report Type: 
  Country: None (occurrence: None)
  Receive Date: 20040709
  Receipt Date: 20040628
  Transmission Date: 20050211
  Serious: Yes (Death, Hospitalization, Other)
  Sender: FDA-Public Use
  Company Number: 2004028818

PATIENT
  Age: 77 Year
  Sex: Male

DRUGS (12)
  1. GLUCOTROL XL [Suspect]
     Indication: ILL-DEFINED DISORDER
     Dosage: 5 MG (1 IN 1 D), ORAL
     Route: 048
     Dates: start: 20040416, end: 20040416
  2. METOPROLOL SUCCINATE [Suspect]
     Indication: ILL-DEFINED DISORDER
     Dosage: (50 MG), ORAL
     Route: 048
     Dates: start: 20040401
  3. CLOPIDOGREL BISULFATE [Suspect]
     Indication: ILL-DEFINED DISORDER
     Dosage: (75 MG), ORAL
     Route: 048
  4. ATORVASTATIN CALCIUM [Concomitant]
  5. SERTRALINE HYDROCHLORIDE [Concomitant]
  6. LANSOPRAZOLE [Concomitant]
  7. PREDNISONE [Concomitant]
  8. ENALAPRIL MALEATE [Concomitant]
  9. ATENOLOL [Concomitant]
  10. VALSARTAN [Concomitant]
  11. WARFARIN SODIUM [Concomitant]
  12. ASPIRIN [Concomitant]

REACTIONS (7)
  - BLOOD CREATININE INCREASED [None]
  - BLOOD GLUCOSE INCREASED [None]
  - BLOOD PRESSURE SYSTOLIC INCREASED [None]
  - COMA [None]
  - HYPOGLYCAEMIA [None]
  - MEDICATION ERROR [None]
  - RENAL DISORDER [None]
